FAERS Safety Report 5566543-2 (Version None)
Quarter: 2007Q4

REPORT INFORMATION
  Report Type: 
  Country: None (occurrence: None)
  Receive Date: 20071219
  Receipt Date: 20071206
  Transmission Date: 20080405
  Serious: Yes (Hospitalization)
  Sender: FDA-Public Use
  Company Number: US-ELI_LILLY_AND_COMPANY-US200712001314

PATIENT
  Sex: Female

DRUGS (7)
  1. FORTEO [Suspect]
     Indication: OSTEOPOROSIS
     Dosage: UNK, UNK
     Dates: start: 20070606
  2. LEVOXYL [Concomitant]
     Dosage: 37.5 UG, DAILY (1/D)
  3. CYTOMEL [Concomitant]
     Dosage: 12.5 UG, DAILY (1/D)
  4. COUMADIN [Concomitant]
  5. PROTONIX [Concomitant]
  6. VICODIN [Concomitant]
  7. ULTRAM [Concomitant]

REACTIONS (2)
  - FULL BLOOD COUNT DECREASED [None]
  - KNEE ARTHROPLASTY [None]
